FAERS Safety Report 5489745-2 (Version None)
Quarter: 2007Q4

REPORT INFORMATION
  Report Type: 
  Country: None (occurrence: None)
  Receive Date: 20071009
  Receipt Date: 20061019
  Transmission Date: 20080405
  Serious: Yes (Death)
  Sender: FDA-Public Use
  Company Number: 2006129096

PATIENT
  Age: 39 Year
  Sex: Female

DRUGS (3)
  1. ADRIAMYCIN PFS [Suspect]
  2. TAXOTERE [Suspect]
  3. CYCLOPHOSPHAMIDE [Suspect]

REACTIONS (1)
  - SEPSIS [None]
